FAERS Safety Report 7315317-0 (Version None)
Quarter: 2011Q1

REPORT INFORMATION
  Report Type: 
  Country: None (occurrence: None)
  Receive Date: 20110218
  Receipt Date: 20110218
  Transmission Date: 20110831
  Serious: Yes (Hospitalization)
  Sender: FDA-Public Use
  Company Number: None

PATIENT
  Age: 48 Year
  Sex: Female
  Weight: 63.5036 kg

DRUGS (1)
  1. BACTRIM [Suspect]
     Indication: SINUSITIS
     Dosage: TWICE DAILY PO
     Route: 048

REACTIONS (4)
  - RENAL FAILURE ACUTE [None]
  - VOMITING [None]
  - MYALGIA [None]
  - RASH PRURITIC [None]
